FAERS Safety Report 18153520 (Version 3)
Quarter: 2020Q3

REPORT INFORMATION
  Report Type: Report from Study
  Country: BR (occurrence: BR)
  Receive Date: 20200816
  Receipt Date: 20200922
  Transmission Date: 20201103
  Serious: Yes (Other)
  Sender: FDA-Public Use
  Company Number: PHHY2018BR070346

PATIENT
  Age: 46 Year
  Sex: Female
  Weight: 62 kg

DRUGS (7)
  1. COSENTYX [Suspect]
     Active Substance: SECUKINUMAB
     Dosage: 150 MG, QW
     Route: 058
     Dates: start: 20180805
  2. COSENTYX [Suspect]
     Active Substance: SECUKINUMAB
     Dosage: 150 MG, QMO
     Route: 058
     Dates: start: 20181105, end: 20181205
  3. COSENTYX [Suspect]
     Active Substance: SECUKINUMAB
     Dosage: UNK
     Route: 065
     Dates: start: 20200804
  4. VIMOVO [Concomitant]
     Active Substance: ESOMEPRAZOLE MAGNESIUM\NAPROXEN
     Indication: SACROILIITIS
     Dosage: 500 MG, QD (ONCE OR TWICE DAILY)
     Route: 048
  5. COSENTYX [Suspect]
     Active Substance: SECUKINUMAB
     Indication: ANKYLOSING SPONDYLITIS
     Dosage: 150 MG, QW
     Route: 058
     Dates: start: 20180705
  6. COSENTYX [Suspect]
     Active Substance: SECUKINUMAB
     Dosage: 150 MG, QW
     Route: 058
     Dates: start: 20180726
  7. LEVOID [Concomitant]
     Active Substance: LEVOTHYROXINE
     Indication: HYPOTHYROIDISM
     Dosage: 75 MG, QD
     Route: 065

REACTIONS (14)
  - Oropharyngeal pain [Recovered/Resolved]
  - Oropharyngeal discomfort [Not Recovered/Not Resolved]
  - Rhinitis [Recovering/Resolving]
  - Infection [Recovered/Resolved]
  - Malaise [Unknown]
  - Inflammation [Not Recovered/Not Resolved]
  - Pharyngitis [Not Recovered/Not Resolved]
  - Pain [Not Recovered/Not Resolved]
  - Influenza [Recovering/Resolving]
  - Drug ineffective [Unknown]
  - Immunodeficiency [Not Recovered/Not Resolved]
  - Tonsillitis [Not Recovered/Not Resolved]
  - Candida infection [Not Recovered/Not Resolved]
  - Tonsillar inflammation [Not Recovered/Not Resolved]

NARRATIVE: CASE EVENT DATE: 20180729
